FAERS Safety Report 7028895-6 (Version None)
Quarter: 2010Q4

REPORT INFORMATION
  Report Type: 
  Country: None (occurrence: None)
  Receive Date: 20101005
  Receipt Date: 20100924
  Transmission Date: 20110411
  Serious: No
  Sender: FDA-Public Use
  Company Number: US-PFIZER INC-2006092034

PATIENT
  Sex: Female
  Weight: 74 kg

DRUGS (8)
  1. CHANTIX [Suspect]
     Indication: SMOKING CESSATION THERAPY
     Dosage: 0.5 MG, 1X/DAY
     Route: 065
     Dates: start: 20060721
  2. CHANTIX [Suspect]
     Dosage: UNK
     Route: 048
     Dates: start: 20070101
  3. DYAZIDE [Concomitant]
     Dosage: UNK
     Route: 065
  4. XANAX [Concomitant]
     Indication: ANXIETY
     Dosage: UNK
     Route: 065
  5. WELLBUTRIN [Concomitant]
     Indication: DEPRESSION
     Dosage: UNK
     Route: 065
  6. NEXIUM [Concomitant]
     Dosage: UNK
     Route: 065
  7. LEVOTHYROXINE [Concomitant]
     Indication: THYROID DISORDER
     Dosage: UNK
     Route: 065
  8. ATENOLOL [Concomitant]
     Indication: HYPERTENSION
     Dosage: UNK
     Route: 065

REACTIONS (4)
  - ABNORMAL DREAMS [None]
  - ANXIETY [None]
  - DIARRHOEA [None]
  - FEAR [None]
